FAERS Safety Report 5543315-6 (Version None)
Quarter: 2007Q4

REPORT INFORMATION
  Report Type: 
  Country: None (occurrence: None)
  Receive Date: 20071210
  Receipt Date: 20071203
  Transmission Date: 20080405
  Serious: Yes (Other)
  Sender: FDA-Public Use
  Company Number: PHBS2007ZA17795

PATIENT
  Age: 49 Year
  Sex: Female

DRUGS (11)
  1. ZOMETA [Suspect]
     Indication: BONE PAIN
     Dosage: 4 MG/MONTH
     Route: 042
     Dates: start: 20040923, end: 20071001
  2. ATERAX [Concomitant]
  3. TENOBLOCK [Concomitant]
  4. COZAAR [Concomitant]
  5. DITROPAN [Concomitant]
  6. PANTOPRAZOLE SODIUM [Concomitant]
  7. VALORON [Concomitant]
  8. LENTOGESIC [Concomitant]
  9. ZYRTEC [Concomitant]
  10. BUPRENORPHINE HCL [Concomitant]
  11. CLOPAMON [Concomitant]

REACTIONS (8)
  - BONE DISORDER [None]
  - IMPAIRED HEALING [None]
  - OSTEONECROSIS [None]
  - PAIN IN EXTREMITY [None]
  - SEQUESTRECTOMY [None]
  - TOOTH DISORDER [None]
  - TOOTH EXTRACTION [None]
  - TOOTH FRACTURE [None]
